FAERS Safety Report 7027760-8 (Version None)
Quarter: 2010Q4

REPORT INFORMATION
  Report Type: 
  Country: None (occurrence: None)
  Receive Date: 20101004
  Receipt Date: 20101004
  Transmission Date: 20110411
  Serious: Yes (Hospitalization)
  Sender: FDA-Public Use
  Company Number: None

PATIENT
  Sex: Female
  Weight: 36.7414 kg

DRUGS (8)
  1. OCTAGAM [Suspect]
     Indication: HYPOGAMMAGLOBULINAEMIA
     Dosage: 15GM MONTHLY IV DRIP
     Route: 041
     Dates: start: 20100909, end: 20100909
  2. DIAZAPAM [Concomitant]
  3. ZOFRAN [Concomitant]
  4. NEXIUM [Concomitant]
  5. LEXAPRO [Concomitant]
  6. EMBEDA [Concomitant]
  7. BENADRYL [Concomitant]
  8. TYLENOL [Concomitant]

REACTIONS (2)
  - CEREBRAL THROMBOSIS [None]
  - CEREBROVASCULAR ACCIDENT [None]
